FAERS Safety Report 5510608-8 (Version None)
Quarter: 2007Q4

REPORT INFORMATION
  Report Type: 
  Country: None (occurrence: None)
  Receive Date: 20071108
  Receipt Date: 20071031
  Transmission Date: 20080405
  Serious: Yes (Hospitalization)
  Sender: FDA-Public Use
  Company Number: CA-BOEHRINGER INGELHEIM PHARMACEUTICALS, INC.-2007-CN-00770CN

PATIENT
  Sex: Female

DRUGS (12)
  1. MICARDIS [Suspect]
     Indication: HYPERTENSION
     Route: 048
     Dates: start: 20000612, end: 20061204
  2. IMODIUM [Concomitant]
  3. NITROGLYCERIN [Concomitant]
  4. DILAUDID [Concomitant]
  5. CARDIZEM CD [Concomitant]
  6. ALDOMET [Concomitant]
  7. SYNTHROID [Concomitant]
  8. DIABETA [Concomitant]
  9. DITROPAN [Concomitant]
  10. ASPIRIN [Concomitant]
  11. TYLENOL (CAPLET) [Concomitant]
  12. VIT C [Concomitant]

REACTIONS (4)
  - EOSINOPHILIA [None]
  - EYELID OEDEMA [None]
  - FACE OEDEMA [None]
  - OEDEMA PERIPHERAL [None]
